FAERS Safety Report 7097771-5 (Version None)
Quarter: 2010Q4

REPORT INFORMATION
  Report Type: 
  Country: None (occurrence: None)
  Receive Date: 20101112
  Receipt Date: 20101102
  Transmission Date: 20110411
  Serious: Yes (Hospitalization)
  Sender: FDA-Public Use
  Company Number: DE-ELI_LILLY_AND_COMPANY-DE201011000684

PATIENT
  Age: 62 Year
  Sex: Female

DRUGS (7)
  1. FORTEO [Suspect]
     Indication: OSTEOPOROSIS
     Route: 058
     Dates: start: 20091124, end: 20100901
  2. CORTISONE [Concomitant]
  3. CALCIMAGON [Concomitant]
  4. NEBIVOLOL [Concomitant]
  5. EUTHYROX [Concomitant]
  6. THEOPHYLLINE [Concomitant]
  7. SALBUHEXAL [Concomitant]

REACTIONS (4)
  - DECREASED APPETITE [None]
  - LIVER FUNCTION TEST ABNORMAL [None]
  - NAUSEA [None]
  - VISUAL IMPAIRMENT [None]
